FAERS Safety Report 10071986 (Version 1)
Quarter: 2014Q1

REPORT INFORMATION
  Report Type: Spontaneous
  Country: US (occurrence: None)
  Receive Date: 20140314
  Receipt Date: 20140314
  Transmission Date: 20141002
  Serious: Yes (Death, Other)
  Sender: FDA-Public Use
  Company Number: 2014US00198

PATIENT
  Age: 66 Year
  Sex: Female

DRUGS (4)
  1. CARBOPLATIN [Suspect]
     Indication: LUNG ADENOCARCINOMA STAGE IV
     Dosage: 3 CYCLES IN AUG AND SEP 11
  2. SORAFENIB [Suspect]
     Indication: LUNG ADENOCARCINOMA STAGE IV
     Route: 048
     Dates: start: 200606
  3. PACLITAXEL [Suspect]
     Indication: LUNG ADENOCARCINOMA STAGE IV
     Dosage: 3 CYCLES IN AUG AND SEP 11
  4. BEVACIZUMAB [Suspect]
     Indication: LUNG ADENOCARCINOMA STAGE IV
     Dosage: 3 CYCLES IN AUG AND SEP 2011

REACTIONS (6)
  - Lung adenocarcinoma recurrent [None]
  - Fatigue [None]
  - Oxygen consumption increased [None]
  - Skin discolouration [None]
  - Inflammation [None]
  - Pneumonia [None]
